FAERS Safety Report 20038784 (Version 1)
Quarter: 2021Q4

REPORT INFORMATION
  Report Type: Spontaneous
  Country: CA (occurrence: CA)
  Receive Date: 20211105
  Receipt Date: 20211105
  Transmission Date: 20220303
  Serious: Yes (Hospitalization)
  Sender: FDA-Public Use
  Company Number: CA-TEVA-2021-CA-1972181

PATIENT
  Age: 25 Year
  Sex: Female

DRUGS (4)
  1. DULOXETINE [Suspect]
     Active Substance: DULOXETINE
     Route: 065
  2. CETIRIZINE [Concomitant]
     Active Substance: CETIRIZINE HYDROCHLORIDE
  3. DEPO-PROVERA STERILE AQUEOUS SUSPENSION [Concomitant]
  4. NAPROXEN [Concomitant]
     Active Substance: NAPROXEN

REACTIONS (3)
  - Dysphemia [Unknown]
  - Gait disturbance [Unknown]
  - Tremor [Unknown]
